FAERS Safety Report 12947132 (Version 1)
Quarter: 2016Q4

REPORT INFORMATION
  Report Type: Spontaneous
  Country: US (occurrence: US)
  Receive Date: 20161116
  Receipt Date: 20161116
  Transmission Date: 20170207
  Serious: No
  Sender: FDA-Public Use
  Company Number: None

PATIENT
  Age: 66 Year
  Sex: Female
  Weight: 59.93 kg

DRUGS (7)
  1. LISINOPRIL-NCTZ [Concomitant]
  2. POTASSIUM ER [Concomitant]
  3. ADVIL [Concomitant]
     Active Substance: IBUPROFEN
  4. ALEVE [Concomitant]
     Active Substance: NAPROXEN SODIUM
  5. VERAPAMIL ER 120MG TAB [Suspect]
     Active Substance: VERAPAMIL HYDROCHLORIDE
     Indication: BLOOD PRESSURE MEASUREMENT
     Dosage: 1 TAB AM 1 TAB PM VERAPAMIL 1 AM 1 BEDTIME VERAPA MOUTH
     Route: 048
  6. ATENOLOL. [Concomitant]
     Active Substance: ATENOLOL
  7. ALPRAZOLAM. [Suspect]
     Active Substance: ALPRAZOLAM
     Indication: ANXIETY
     Dosage: 1 TAB 3 TIMES A DAY ALPRA 1 AT DAY 2 AT BED AL MOUTH
     Route: 048
     Dates: start: 20161012

REACTIONS (3)
  - Product colour issue [None]
  - Migraine [None]
  - Drug ineffective [None]

NARRATIVE: CASE EVENT DATE: 201609
